FAERS Safety Report 19427171 (Version 1)
Quarter: 2021Q2

REPORT INFORMATION
  Report Type: Spontaneous
  Country: TR (occurrence: TR)
  Receive Date: 20210617
  Receipt Date: 20210617
  Transmission Date: 20210717
  Serious: Yes (Death, Other)
  Sender: FDA-Public Use
  Company Number: TR-ASTELLAS-2021US021453

PATIENT
  Age: 69 Year
  Sex: Male

DRUGS (6)
  1. ABIRATERONE. [Suspect]
     Active Substance: ABIRATERONE ACETATE
     Indication: PRODUCT USED FOR UNKNOWN INDICATION
     Dosage: UNK UNK, UNKNOWN FREQ.
     Route: 065
     Dates: start: 202102
  2. ZOLEDRONIC ACID [Suspect]
     Active Substance: ZOLEDRONIC ACID
     Indication: HORMONE-REFRACTORY PROSTATE CANCER
     Dosage: 4 MG, EVERY 28 DAYS
     Route: 065
     Dates: start: 201809
  3. DOCETAXEL. [Suspect]
     Active Substance: DOCETAXEL
     Indication: MALIGNANT NEOPLASM PROGRESSION
     Route: 065
  4. ALFUZOSIN [Suspect]
     Active Substance: ALFUZOSIN
     Indication: MICTURITION URGENCY
     Route: 065
     Dates: start: 201708
  5. LEUPRORELIN [Suspect]
     Active Substance: LEUPROLIDE ACETATE
     Indication: PROSTATE CANCER
     Route: 065
  6. XTANDI [Suspect]
     Active Substance: ENZALUTAMIDE
     Indication: HORMONE-REFRACTORY PROSTATE CANCER
     Route: 048
     Dates: start: 201809

REACTIONS (8)
  - Hepatitis [Unknown]
  - Pancreatitis [Unknown]
  - Malignant neoplasm progression [Unknown]
  - Gynaecomastia [Unknown]
  - Fatigue [Unknown]
  - Neutropenia [Unknown]
  - Thrombocytopenia [Unknown]
  - Death [Fatal]

NARRATIVE: CASE EVENT DATE: 202104
